FAERS Safety Report 5063344-9 (Version None)
Quarter: 2006Q3

REPORT INFORMATION
  Report Type: 
  Country: None (occurrence: None)
  Receive Date: 20060703
  Receipt Date: 20060530
  Transmission Date: 20061208
  Serious: No
  Sender: FDA-Public Use
  Company Number: 2006PV014663

PATIENT
  Age: 48 Year
  Sex: Female

DRUGS (14)
  1. SYMLIN [Suspect]
     Indication: DIABETES MELLITUS INSULIN-DEPENDENT
     Dosage: SEE IMAGE
     Route: 058
     Dates: start: 20051001, end: 20051201
  2. SYMLIN [Suspect]
     Indication: DIABETES MELLITUS INSULIN-DEPENDENT
     Dosage: SEE IMAGE
     Route: 058
     Dates: start: 20060501
  3. LIPITOR [Concomitant]
  4. LISINOPRIL [Concomitant]
  5. ENTOCORT [Concomitant]
  6. POTASSIUM [Concomitant]
  7. CALCIUM GLUCONATE [Concomitant]
  8. SINGULAIR [Concomitant]
  9. FEXOFENADINE [Concomitant]
  10. ZOLOFT [Concomitant]
  11. INSULIN PUMP [Concomitant]
  12. LANTUS [Concomitant]
  13. HUMALOG [Concomitant]
  14. NOVOLOG [Concomitant]

REACTIONS (4)
  - BLOOD GLUCOSE DECREASED [None]
  - BLOOD GLUCOSE INCREASED [None]
  - DRUG INEFFECTIVE [None]
  - FATIGUE [None]
